FAERS Safety Report 7479252-X (Version None)
Quarter: 2011Q2

REPORT INFORMATION
  Report Type: 
  Country: None (occurrence: None)
  Receive Date: 20110513
  Receipt Date: 20110507
  Transmission Date: 20111010
  Serious: Yes (Other)
  Sender: FDA-Public Use
  Company Number: D0071305A

PATIENT
  Age: 38 Year
  Sex: Female
  Weight: 70 kg

DRUGS (2)
  1. ALCOHOL [Suspect]
     Route: 048
     Dates: start: 20110506
  2. LAMICTAL [Suspect]
     Dosage: 2G PER DAY
     Route: 048
     Dates: start: 20110506

REACTIONS (6)
  - DEPRESSED LEVEL OF CONSCIOUSNESS [None]
  - INTENTIONAL OVERDOSE [None]
  - SUICIDE ATTEMPT [None]
  - NYSTAGMUS [None]
  - VOMITING [None]
  - ATAXIA [None]
